FAERS Safety Report 5179246-3 (Version None)
Quarter: 2006Q4

REPORT INFORMATION
  Report Type: 
  Country: None (occurrence: None)
  Receive Date: 20061219
  Receipt Date: 20061208
  Transmission Date: 20070319
  Serious: Yes (Other)
  Sender: FDA-Public Use
  Company Number: US-AVENTIS-200619983US

PATIENT
  Sex: Female

DRUGS (8)
  1. LANTUS [Suspect]
     Indication: DIABETES MELLITUS NON-INSULIN-DEPENDENT
     Dates: start: 20060101, end: 20060301
  2. LANTUS [Suspect]
     Dosage: DOSE: SLIDING SCALE
     Dates: start: 20060301
  3. GLUCOPHAGE [Suspect]
     Dosage: DOSE: UNK
  4. DIABINESE [Suspect]
     Dosage: DOSE: UNK
  5. DIABINESE [Suspect]
     Dosage: DOSE: UNK
  6. LISINOPRIL [Concomitant]
     Dosage: DOSE: UNK
  7. TRICOR                             /00090101/ [Concomitant]
     Dosage: DOSE: UNK
  8. ^OTHER MEDICATION^ NOS [Concomitant]
     Dosage: DOSE: UNK

REACTIONS (7)
  - CATARACT [None]
  - DIABETIC COMA [None]
  - DIPLOPIA [None]
  - EYE DISORDER [None]
  - RETINAL HAEMORRHAGE [None]
  - VISUAL DISTURBANCE [None]
  - VITREOUS FLOATERS [None]
